FAERS Safety Report 10387019 (Version 1)
Quarter: 2014Q1

REPORT INFORMATION
  Report Type: Spontaneous
  Country: US (occurrence: None)
  Receive Date: 20140306
  Receipt Date: 20140306
  Transmission Date: 20141002
  Serious: Yes (Hospitalization)
  Sender: FDA-Public Use
  Company Number: 163-21880-13093824

PATIENT
  Age: 83 Year
  Sex: Male

DRUGS (18)
  1. REVLIMID [Suspect]
     Indication: PLASMA CELL MYELOMA
     Route: 048
     Dates: start: 201104
  2. DEXAMETHASONE [Concomitant]
  3. AMBIEN (ZOLPIDEM TARTRATE) [Concomitant]
  4. COLACE (DOCUSATE SODIUM) [Concomitant]
  5. CITALOPRAM [Concomitant]
  6. WARFARIN [Concomitant]
  7. ZOCOR (SIMVASTATIN) [Concomitant]
  8. VITAMIN C (ASCORBIC ACID) [Concomitant]
  9. VITAMIN D3 (COLECALCIFEROL) [Concomitant]
  10. COREG (CARVEDILOL) [Concomitant]
  11. ROBAXIN (METHOCARBAMOL) [Concomitant]
  12. MIRALAX (MACROGOL) [Concomitant]
  13. SENOKOT (SENNA FRUIT) [Concomitant]
  14. DILAUDID (HYDROMORPHONE HYDROCHLORIDE) [Concomitant]
  15. PERCOCET (OXYCOCET) [Concomitant]
  16. LORAZEPAM [Concomitant]
  17. PROCHLORPERAZINE MALEATE [Concomitant]
  18. OMEPRAZOLE [Concomitant]

REACTIONS (2)
  - Compression fracture [None]
  - Cellulitis [None]
